FAERS Safety Report 5365335-7 (Version None)
Quarter: 2007Q2

REPORT INFORMATION
  Report Type: 
  Country: None (occurrence: None)
  Receive Date: 20070621
  Receipt Date: 20070612
  Transmission Date: 20071010
  Serious: Yes (Hospitalization)
  Sender: FDA-Public Use
  Company Number: JP-BRISTOL-MYERS SQUIBB COMPANY-13818422

PATIENT
  Age: 39 Year
  Sex: Male

DRUGS (9)
  1. EFAVIRENZ [Suspect]
     Indication: HIV INFECTION
     Route: 048
     Dates: start: 20050425
  2. STAVUDINE [Suspect]
     Indication: HIV INFECTION
     Dates: start: 19981221, end: 20050424
  3. ATAZANAVIR SULFATE [Suspect]
     Indication: HIV INFECTION
     Dates: start: 20040130, end: 20050424
  4. LAMIVUDINE [Suspect]
     Indication: HIV INFECTION
     Route: 048
     Dates: start: 19971229, end: 20050424
  5. RITONAVIR [Suspect]
     Indication: HIV INFECTION
     Dates: start: 20040728, end: 20050424
  6. TENOFOVIR DISOPROXIL FUMARATE [Suspect]
     Indication: HIV INFECTION
     Dates: start: 20050425, end: 20050523
  7. AMMONIUM GLYCYRRHIZINATE [Concomitant]
     Dates: start: 20050401, end: 20050615
  8. FACTOR VIII [Concomitant]
     Dates: start: 20050401, end: 20050411
  9. OCTOCOG ALPHA [Concomitant]
     Dates: start: 20050412

REACTIONS (1)
  - HEPATIC CIRRHOSIS [None]
